FAERS Safety Report 24603114 (Version 2)
Quarter: 2024Q4

REPORT INFORMATION
  Report Type: Spontaneous
  Country: BR (occurrence: BR)
  Receive Date: 20241111
  Receipt Date: 20241113
  Transmission Date: 20250115
  Serious: Yes (Other)
  Sender: NOVARTIS
  Company Number: BR-002147023-NVSC2024BR207900

PATIENT
  Age: 70 Year
  Sex: Male
  Weight: 82 kg

DRUGS (9)
  1. MEKINIST [Suspect]
     Active Substance: TRAMETINIB DIMETHYL SULFOXIDE
     Indication: Malignant melanoma
     Dosage: 1 DOSAGE FORM, QD (1 TABLET, PER DAY)
     Route: 048
     Dates: start: 20240912
  2. TAFINLAR [Suspect]
     Active Substance: DABRAFENIB MESYLATE
     Indication: Malignant melanoma
     Dosage: 2 DOSAGE FORM, QD
     Route: 048
     Dates: start: 20240912
  3. DIOVAN [Suspect]
     Active Substance: VALSARTAN
     Indication: Blood pressure increased
     Dosage: 80 MG (1 TABLET AT NIGHT)
     Route: 065
  4. DIOVAN [Suspect]
     Active Substance: VALSARTAN
     Indication: Prophylaxis
     Dosage: 320 (FOR MORE THAN 10 YEARS) (AFTER 5 YEARS)
     Route: 048
  5. TACROLIMUS [Concomitant]
     Active Substance: TACROLIMUS
     Indication: Immunosuppressant drug therapy
     Dosage: 1 MG (TWO TABLETS IN THE MORNING AND 2 TABLETS AT NIGHT), ALMOST 2 YEARS AGO
     Route: 048
  6. PREDNISONE [Concomitant]
     Active Substance: PREDNISONE
     Indication: Immunosuppressant drug therapy
     Dosage: 5 MG, QD (1 TABLET IN THE MORNING), ALMOST 2 YEARS AGO
     Route: 048
  7. OMEPRAZOLE [Concomitant]
     Active Substance: OMEPRAZOLE
     Indication: Prophylaxis
     Dosage: 20 MG, QD (1 TABLET IN THE MORNING), ALMOST 2 YEARS AGO
     Route: 048
  8. MYCOPHENOLATE SODIUM [Concomitant]
     Active Substance: MYCOPHENOLATE SODIUM
     Indication: Immunosuppressant drug therapy
     Dosage: 300 MG, BID (1 TABLET IN THE MORNING AND 1 IN THE EVENING), ALMOST 2  YEARS AGO
     Route: 048
  9. BACTRIM [Concomitant]
     Active Substance: SULFAMETHOXAZOLE\TRIMETHOPRIM
     Indication: Antibiotic therapy
     Dosage: 400/80, ONE TABLET AT NIGHT, ALMOST 2 YEARS AGO
     Route: 048

REACTIONS (9)
  - Nodule [Recovered/Resolved]
  - Melanocytic naevus [Recovered/Resolved]
  - Influenza like illness [Recovered/Resolved]
  - Back pain [Recovered/Resolved]
  - Decreased appetite [Recovered/Resolved]
  - Malaise [Recovered/Resolved]
  - Pyrexia [Recovered/Resolved]
  - Intentional product use issue [Unknown]
  - Haemoglobinopathy [Unknown]

NARRATIVE: CASE EVENT DATE: 20240731
